FAERS Safety Report 10085175 (Version 1)
Quarter: 2014Q2

REPORT INFORMATION
  Report Type: Report from Study
  Country: CA (occurrence: CA)
  Receive Date: 20140417
  Receipt Date: 20140417
  Transmission Date: 20141212
  Serious: Yes (Hospitalization)
  Sender: FDA-Public Use
  Company Number: CA-GILEAD-2014-0099596

PATIENT
  Sex: Male

DRUGS (1)
  1. AZTREONAM LYSINE [Suspect]
     Indication: CYSTIC FIBROSIS
     Dosage: UNK
     Route: 065
     Dates: end: 2013

REACTIONS (2)
  - General physical health deterioration [Not Recovered/Not Resolved]
  - Unevaluable event [Not Recovered/Not Resolved]
